FAERS Safety Report 6806583-6 (Version None)
Quarter: 2010Q2

REPORT INFORMATION
  Report Type: 
  Country: None (occurrence: None)
  Receive Date: 20100629
  Receipt Date: 20080524
  Transmission Date: 20101027
  Serious: Yes (Other)
  Sender: FDA-Public Use
  Company Number: US-PFIZER INC-2008020944

PATIENT
  Sex: Female
  Weight: 117.5 kg

DRUGS (14)
  1. ZYVOX [Suspect]
     Indication: OSTEOMYELITIS
     Route: 042
     Dates: start: 20070905, end: 20071015
  2. ZYVOX [Suspect]
     Dosage: BID: EVERY DAY
     Route: 048
     Dates: start: 20071105, end: 20071111
  3. ZYVOX [Suspect]
     Indication: OSTEOMYELITIS
     Route: 048
     Dates: start: 20071111, end: 20071119
  4. ZYVOX [Suspect]
     Dates: start: 20071126, end: 20071221
  5. GLYBURIDE [Concomitant]
  6. METFORMIN HCL [Concomitant]
  7. LASIX [Concomitant]
  8. SYNTHROID [Concomitant]
  9. LIPITOR [Concomitant]
  10. NEXIUM [Concomitant]
  11. COZAAR [Concomitant]
  12. NORVASC [Concomitant]
  13. LABETALOL HCL [Concomitant]
  14. REQUIP [Concomitant]

REACTIONS (2)
  - COLOUR BLINDNESS [None]
  - STAPHYLOCOCCAL INFECTION [None]
